FAERS Safety Report 17524429 (Version 1)
Quarter: 2020Q1

REPORT INFORMATION
  Report Type: Spontaneous
  Country: CA (occurrence: CA)
  Receive Date: 20200310
  Receipt Date: 20200310
  Transmission Date: 20200409
  Serious: Yes (Other)
  Sender: FDA-Public Use
  Company Number: CA-PFIZER INC-2019291406

PATIENT
  Age: 74 Year
  Sex: Female
  Weight: 50 kg

DRUGS (3)
  1. XELJANZ [Suspect]
     Active Substance: TOFACITINIB CITRATE
     Indication: RHEUMATOID ARTHRITIS
     Dosage: 5 MG, 2X/DAY
     Route: 048
     Dates: start: 201906
  2. LEFLUNOMIDE. [Concomitant]
     Active Substance: LEFLUNOMIDE
     Dosage: 10 MG, DAILY
     Route: 048
  3. PREDNISONE. [Concomitant]
     Active Substance: PREDNISONE
     Dosage: 5 MG, DAILY

REACTIONS (5)
  - Dizziness postural [Unknown]
  - Pain [Not Recovered/Not Resolved]
  - Impaired quality of life [Unknown]
  - Joint injury [Unknown]
  - Somnolence [Unknown]
